FAERS Safety Report 7579867-4 (Version None)
Quarter: 2011Q2

REPORT INFORMATION
  Report Type: 
  Country: None (occurrence: None)
  Receive Date: 20110525
  Receipt Date: 20110128
  Transmission Date: 20111010
  Serious: No
  Sender: FDA-Public Use
  Company Number: 321348

PATIENT
  Age: 64 Year
  Sex: Female

DRUGS (2)
  1. PRILOSEC [Concomitant]
  2. VICTOZA [Suspect]
     Indication: TYPE 2 DIABETES MELLITUS
     Dosage: SUBCUTANEOUS
     Route: 058

REACTIONS (3)
  - HYPERCHLORHYDRIA [None]
  - DIARRHOEA [None]
  - FLATULENCE [None]
